FAERS Safety Report 7244865-7 (Version None)
Quarter: 2011Q1

REPORT INFORMATION
  Report Type: 
  Country: None (occurrence: None)
  Receive Date: 20110126
  Receipt Date: 20110120
  Transmission Date: 20110831
  Serious: No
  Sender: FDA-Public Use
  Company Number: US-PFIZER INC-2010070188

PATIENT
  Sex: Female
  Weight: 77.098 kg

DRUGS (2)
  1. LYRICA [Suspect]
     Indication: NEUROPATHY PERIPHERAL
     Dosage: 200 MG, 3X/DAY
     Route: 048
  2. HUMALOG [Concomitant]
     Indication: DIABETES MELLITUS
     Dosage: 6 IU, 3X/DAY

REACTIONS (2)
  - HEADACHE [None]
  - ABDOMINAL DISCOMFORT [None]
